FAERS Safety Report 17583901 (Version 3)
Quarter: 2020Q2

REPORT INFORMATION
  Report Type: Spontaneous
  Country: US (occurrence: US)
  Receive Date: 20200326
  Receipt Date: 20200504
  Transmission Date: 20200713
  Serious: Yes (Other)
  Sender: FDA-Public Use
  Company Number: US-GLAXOSMITHKLINE-US2020AMR050182

PATIENT
  Sex: Female

DRUGS (1)
  1. ZEJULA [Suspect]
     Active Substance: NIRAPARIB
     Indication: FALLOPIAN TUBE CANCER
     Dosage: 100 MG, QD
     Route: 048
     Dates: start: 20190109

REACTIONS (6)
  - Vomiting [Unknown]
  - Malignant neoplasm progression [Unknown]
  - Choking [Unknown]
  - Product dose omission [Unknown]
  - Hot flush [Unknown]
  - Product use complaint [Unknown]
